FAERS Safety Report 5035005-3 (Version None)
Quarter: 2006Q2

REPORT INFORMATION
  Report Type: 
  Country: None (occurrence: None)
  Receive Date: 20060519
  Receipt Date: 20060413
  Transmission Date: 20061013
  Serious: No
  Sender: FDA-Public Use
  Company Number: TPA2006A00664

PATIENT
  Age: 18 Year
  Sex: Female
  Weight: 35.3806 kg

DRUGS (3)
  1. ROZEREM [Suspect]
     Indication: INSOMNIA
     Dosage: 8 MG, HS, PER ORAL
     Route: 048
     Dates: start: 20060406, end: 20060411
  2. MOTRIN [Concomitant]
  3. GLYCOLAX (LAXATIVES) (15 GRAM) [Concomitant]

REACTIONS (4)
  - FLAT AFFECT [None]
  - MENTAL STATUS CHANGES [None]
  - MIDDLE INSOMNIA [None]
  - SOMNOLENCE [None]
